FAERS Safety Report 16532768 (Version 2)
Quarter: 2019Q3

REPORT INFORMATION
  Report Type: Spontaneous
  Country: JP (occurrence: JP)
  Receive Date: 20190705
  Receipt Date: 20190919
  Transmission Date: 20191004
  Serious: Yes (Death, Other)
  Sender: FDA-Public Use
  Company Number: JP-009507513-1907JPN000122J

PATIENT
  Age: 72 Year
  Sex: Male

DRUGS (2)
  1. KEYTRUDA [Suspect]
     Active Substance: PEMBROLIZUMAB
     Dosage: 200 MILLIGRAM, Q3W
     Route: 041
     Dates: start: 2019, end: 2019
  2. KEYTRUDA [Suspect]
     Active Substance: PEMBROLIZUMAB
     Indication: NON-SMALL CELL LUNG CANCER
     Dosage: 200 MILLIGRAM, Q3W
     Route: 041
     Dates: end: 2019

REACTIONS (2)
  - Malignant neoplasm progression [Fatal]
  - Interstitial lung disease [Fatal]

NARRATIVE: CASE EVENT DATE: 2019
